FAERS Safety Report 4441784-6 (Version None)
Quarter: 2004Q3

REPORT INFORMATION
  Report Type: 
  Country: None (occurrence: None)
  Receive Date: 20040907
  Receipt Date: 20040823
  Transmission Date: 20050211
  Serious: Yes (Hospitalization)
  Sender: FDA-Public Use
  Company Number: FR-JNJFOC-20040801082

PATIENT
  Age: 89 Year
  Sex: Male

DRUGS (7)
  1. DAKTARIN [Suspect]
     Indication: DRUG USE FOR UNKNOWN INDICATION
     Dosage: 2 APPLICATIONS OF GEL PER DAY
     Route: 049
  2. TOPALGIC [Suspect]
     Indication: DRUG USE FOR UNKNOWN INDICATION
     Route: 049
     Dates: start: 20040505, end: 20040524
  3. AMOXICILLIN [Suspect]
     Indication: ERYSIPELAS
     Route: 049
     Dates: start: 20040511, end: 20040526
  4. LOVENOX [Suspect]
     Indication: DRUG USE FOR UNKNOWN INDICATION
     Route: 058
     Dates: start: 20040505, end: 20040524
  5. PENICILLIN [Concomitant]
  6. ORACILLINE [Concomitant]
     Route: 049
  7. AMOXICILLIN [Concomitant]
     Indication: ERYSIPELAS

REACTIONS (2)
  - RASH ERYTHEMATOUS [None]
  - RASH SCALY [None]
